FAERS Safety Report 5509733-7 (Version None)
Quarter: 2007Q4

REPORT INFORMATION
  Report Type: 
  Country: None (occurrence: None)
  Receive Date: 20071107
  Receipt Date: 20071107
  Transmission Date: 20080405
  Serious: Yes (Hospitalization)
  Sender: FDA-Public Use
  Company Number: None

PATIENT
  Sex: Female
  Weight: 63.8 kg

DRUGS (2)
  1. CETUXIMAB, 250MG/M2 [Suspect]
     Indication: BREAST CANCER METASTATIC
     Dosage: 250 MG/M2 WEEKLY IV
     Route: 042
     Dates: start: 20071009, end: 20071030
  2. CARBOPLATIN [Suspect]
     Dosage: AUC=2 WEEKLY X 3 + 1 WK OFF IV
     Route: 042
     Dates: start: 20071009, end: 20071023

REACTIONS (2)
  - DYSPNOEA [None]
  - PLEURAL EFFUSION [None]
